FAERS Safety Report 16266725 (Version 1)
Quarter: 2019Q2

REPORT INFORMATION
  Report Type: Report from Study
  Country: IT (occurrence: IT)
  Receive Date: 20190502
  Receipt Date: 20190502
  Transmission Date: 20190711
  Serious: Yes (Other)
  Sender: FDA-Public Use
  Company Number: IT-PFIZER INC-2019180437

PATIENT
  Age: 9 Year
  Sex: Male
  Weight: 37 kg

DRUGS (19)
  1. DIFLUCAN [Concomitant]
     Active Substance: FLUCONAZOLE
     Dosage: 200 MG, UNK
     Route: 048
     Dates: start: 20180808, end: 20180821
  2. MYCOSTATIN [Concomitant]
     Active Substance: NYSTATIN
     Dosage: 15 ML, UNK
     Route: 048
     Dates: start: 20180720
  3. DILATREND [Concomitant]
     Active Substance: CARVEDILOL
     Dosage: 1.56 MG, UNK
     Dates: start: 20180809
  4. VINCRISTINE SULFATE. [Suspect]
     Active Substance: VINCRISTINE SULFATE
     Indication: ACUTE LYMPHOCYTIC LEUKAEMIA
     Dosage: 1.77 MG, CYCLIC
     Route: 042
     Dates: start: 20180727, end: 20180830
  5. LASIX [Concomitant]
     Active Substance: FUROSEMIDE
     Dosage: 12.5 MG, UNK
     Route: 048
     Dates: start: 20180803
  6. ANTRA [OMEPRAZOLE MAGNESIUM] [Concomitant]
     Dosage: 20 MG, UNK
     Route: 042
  7. PEGASPARGASE [Suspect]
     Active Substance: PEGASPARGASE
     Indication: ACUTE LYMPHOCYTIC LEUKAEMIA
     Dosage: 2950 KIU, CYCLIC
     Route: 042
     Dates: start: 20180802, end: 20180827
  8. URBASON [METHYLPREDNISOLONE ACETATE] [Concomitant]
     Dosage: 10 MG, UNK
     Route: 037
     Dates: start: 20180723, end: 20181015
  9. DELTACORTENE [Concomitant]
     Active Substance: PREDNISONE
     Dosage: 70 MG, UNK
     Route: 048
     Dates: start: 20180727
  10. PRIVIGEN [Concomitant]
     Active Substance: HUMAN IMMUNOGLOBULIN G
     Dosage: 15 G, UNK
     Route: 042
     Dates: start: 20180811, end: 20180812
  11. ANTITHROMBIN III HUMAN [Concomitant]
     Active Substance: ANTITHROMBIN III HUMAN
     Dosage: 500 IU, UNK
     Route: 042
     Dates: start: 20180806, end: 20180821
  12. PAXABEL [Concomitant]
     Dosage: 1 DF, UNK
     Route: 048
     Dates: start: 20180803, end: 20180810
  13. ENAPREN [Concomitant]
     Active Substance: ENALAPRIL MALEATE
     Dosage: 5 MG, UNK
     Route: 048
     Dates: start: 20180803, end: 20180903
  14. ZOFRAN [Concomitant]
     Active Substance: ONDANSETRON HYDROCHLORIDE
     Dosage: 6 MG, UNK
     Route: 042
     Dates: start: 20180723, end: 20180813
  15. DEURSIL [Concomitant]
     Active Substance: URSODIOL
     Dosage: 600 MG, UNK
     Route: 048
     Dates: start: 20180811
  16. BACTRIM [Concomitant]
     Active Substance: SULFAMETHOXAZOLE\TRIMETHOPRIM
     Dosage: 14 ML, UNK
     Route: 048
     Dates: start: 20180720
  17. DAUNOBLASTINA [Suspect]
     Active Substance: DAUNORUBICIN
     Indication: ACUTE LYMPHOCYTIC LEUKAEMIA
     Dosage: 35.4 MG, CYCLIC
     Route: 042
     Dates: start: 20180727, end: 20180830
  18. METHOTREXATE SODIUM. [Suspect]
     Active Substance: METHOTREXATE SODIUM
     Indication: ACUTE LYMPHOCYTIC LEUKAEMIA
     Dosage: 12 MG, CYCLIC
     Route: 037
     Dates: start: 20180723, end: 20181015
  19. URBASON [METHYLPREDNISOLONE ACETATE] [Concomitant]
     Indication: PREMEDICATION
     Dosage: 205 MG, UNK
     Route: 042
     Dates: start: 20180721

REACTIONS (2)
  - Pyrexia [Recovered/Resolved]
  - Aeromonas infection [Recovered/Resolved]

NARRATIVE: CASE EVENT DATE: 20180812
